FAERS Safety Report 24760740 (Version 1)
Quarter: 2024Q4

REPORT INFORMATION
  Report Type: Spontaneous
  Country: EU (occurrence: ES)
  Receive Date: 20241220
  Receipt Date: 20241220
  Transmission Date: 20250114
  Serious: Yes (Other)
  Sender: RADIUS PHARM
  Company Number: EU-RADIUS HEALTH INC.-2024ES009562

PATIENT
  Age: 64 Year
  Sex: Female

DRUGS (8)
  1. ABALOPARATIDE [Suspect]
     Active Substance: ABALOPARATIDE
     Indication: Osteoporosis
     Dosage: 1 DOSAGE FORM, QD
     Route: 058
     Dates: start: 20240828, end: 20241106
  2. ASPIRIN\ATORVASTATIN CALCIUM\RAMIPRIL [Concomitant]
     Active Substance: ASPIRIN\ATORVASTATIN CALCIUM\RAMIPRIL
     Indication: Stent placement
     Dosage: 1 DOSAGE FORM, QD
     Route: 048
     Dates: start: 202405
  3. BISOPROLOL FUMARATE [Concomitant]
     Active Substance: BISOPROLOL FUMARATE
     Indication: Stent placement
     Dosage: 1 DOSAGE FORM, QD
     Route: 048
     Dates: start: 202405
  4. CLOPIDOGREL [Concomitant]
     Active Substance: CLOPIDOGREL BISULFATE
     Indication: Stent placement
     Dosage: 1 DOSAGE FORM, QD
     Route: 048
     Dates: start: 202405
  5. NEXIUM I.V. [Concomitant]
     Active Substance: ESOMEPRAZOLE SODIUM
     Indication: Abdominal discomfort
     Dosage: 2 DOSAGE FORM, QD, SINCE YEARS; 1 IN THE MORNING AND 1 IN THE EVENING
     Route: 048
  6. EBASTINE [Concomitant]
     Active Substance: EBASTINE
     Indication: Hypersensitivity
     Dosage: 1 DOSAGE FORM, QD, TAKEN FOR YEARS
     Route: 048
  7. CALCIFEDIOL [Concomitant]
     Active Substance: CALCIFEDIOL
     Indication: Osteoporosis
     Dosage: 1 DOSAGE FORM, QD, TAKEN FOR YEARS
     Route: 048
  8. VERISCAL D [Concomitant]
     Indication: Osteoporosis
     Dosage: 1 DOSAGE FORM, QD, TAKEN FOR YEARS
     Route: 048

REACTIONS (8)
  - Humerus fracture [Unknown]
  - Dizziness [Recovering/Resolving]
  - Nausea [Recovered/Resolved]
  - Blood pressure increased [Recovered/Resolved]
  - Heart rate increased [Recovered/Resolved]
  - Weight decreased [Recovered/Resolved]
  - Malaise [Recovered/Resolved]
  - Fall [Unknown]

NARRATIVE: CASE EVENT DATE: 20240828
